FAERS Safety Report 9141072 (Version 1)
Quarter: 2013Q1

REPORT INFORMATION
  Report Type: Spontaneous
  Country: US (occurrence: US)
  Receive Date: 20130305
  Receipt Date: 20130305
  Transmission Date: 20140127
  Serious: Yes (Hospitalization, Other)
  Sender: FDA-Public Use
  Company Number: US-PFIZER INC-2013074601

PATIENT
  Age: 52 Year
  Sex: Female
  Weight: 88.44 kg

DRUGS (5)
  1. LYRICA [Suspect]
     Indication: FIBROMYALGIA
     Dosage: 75 MG DAILY
     Dates: start: 200712, end: 201209
  2. LYRICA [Suspect]
     Dosage: 225 MG, 2X/DAY
     Dates: start: 201301
  3. XANAX [Suspect]
     Indication: ANXIETY
     Dosage: 2 MG, 3X/DAY
  4. SOMA [Suspect]
     Indication: MUSCLE RELAXANT THERAPY
     Dosage: 335 MG, 3X/DAY
  5. SYNTHROID [Concomitant]
     Indication: THYROID DISORDER
     Dosage: 1.75 MG, UNK

REACTIONS (12)
  - Road traffic accident [Unknown]
  - Somnambulism [Unknown]
  - Personality change [Unknown]
  - Mental impairment [Unknown]
  - Irritability [Unknown]
  - Bradyphrenia [Unknown]
  - Decreased interest [Unknown]
  - Gambling [Unknown]
  - Withdrawal syndrome [Unknown]
  - Fibromyalgia [Unknown]
  - Vomiting [Unknown]
  - Diarrhoea [Unknown]
